FAERS Safety Report 13904675 (Version 1)
Quarter: 2017Q3

REPORT INFORMATION
  Report Type: Spontaneous
  Country: US (occurrence: US)
  Receive Date: 20170824
  Receipt Date: 20170824
  Transmission Date: 20171127
  Serious: Yes (Hospitalization)
  Sender: FDA-Public Use
  Company Number: None

PATIENT
  Age: 54 Year
  Sex: Female
  Weight: 157.5 kg

DRUGS (6)
  1. DILTIAZEM EXTENDED RELEASE [Concomitant]
     Active Substance: DILTIAZEM
  2. INVANZ [Suspect]
     Active Substance: ERTAPENEM SODIUM
     Indication: MENINGITIS HAEMOPHILUS
     Dosage: 1 G DAILY INTRAVENOUS (NOT OTHERWISE SPECIFIED)
     Route: 042
     Dates: start: 20170819, end: 20170822
  3. CIPROFLOXACIN. [Concomitant]
     Active Substance: CIPROFLOXACIN
  4. CITALOPRAM [Concomitant]
     Active Substance: CITALOPRAM HYDROBROMIDE
  5. ASPIRIN. [Concomitant]
     Active Substance: ASPIRIN
  6. ALBUTEROL SULFATE HFA [Concomitant]
     Active Substance: ALBUTEROL SULFATE

REACTIONS (3)
  - Generalised tonic-clonic seizure [None]
  - Tongue biting [None]
  - Postictal state [None]

NARRATIVE: CASE EVENT DATE: 20170822
